FAERS Safety Report 5186389-7 (Version None)
Quarter: 2006Q4

REPORT INFORMATION
  Report Type: 
  Country: None (occurrence: None)
  Receive Date: 20061220
  Receipt Date: 20060525
  Transmission Date: 20070319
  Serious: Yes (Other)
  Sender: FDA-Public Use
  Company Number: US-SHR-US-2006-013249

PATIENT
  Age: 42 Year
  Sex: Female
  Weight: 91 kg

DRUGS (5)
  1. BETASERON [Suspect]
     Indication: RELAPSING-REMITTING MULTIPLE SCLEROSIS
     Dosage: 8 MIU, EVERY 2D
     Route: 058
     Dates: start: 20051215
  2. PROCARDIA XL [Concomitant]
     Indication: HYPERTENSION
     Dosage: 60 MG, 1X/DAY
     Route: 048
     Dates: start: 19930101
  3. HYDROCHLOROTHIAZIDE [Concomitant]
     Indication: DIURETIC THERAPY
     Dosage: 50 MG, 2X/DAY
     Route: 048
     Dates: start: 19930101
  4. AXID [Concomitant]
     Dosage: 150 MG, 1X/DAY
     Route: 048
     Dates: start: 19940101
  5. ZOLOFT [Concomitant]
     Indication: DEPRESSION
     Dosage: 100 MG, 2X/DAY
     Route: 048
     Dates: start: 19930101

REACTIONS (2)
  - HEART RATE DECREASED [None]
  - SYNCOPE [None]
